FAERS Safety Report 8416376-4 (Version None)
Quarter: 2012Q2

REPORT INFORMATION
  Report Type: 
  Country: None (occurrence: None)
  Receive Date: 20120606
  Receipt Date: 20120525
  Transmission Date: 20120825
  Serious: Yes (Other)
  Sender: FDA-Public Use
  Company Number: GR-BRISTOL-MYERS SQUIBB COMPANY-16634321

PATIENT
  Age: 26 Year
  Sex: Male

DRUGS (3)
  1. ETOPOSIDE [Suspect]
  2. BLEOMYCIN SULFATE [Suspect]
  3. CISPLATIN [Suspect]

REACTIONS (2)
  - DEEP VEIN THROMBOSIS [None]
  - PULMONARY EMBOLISM [None]
